FAERS Safety Report 25021716 (Version 3)
Quarter: 2025Q3

REPORT INFORMATION
  Report Type: Spontaneous
  Country: EU (occurrence: EU)
  Receive Date: 20250228
  Receipt Date: 20250909
  Transmission Date: 20251020
  Serious: Yes (Other)
  Sender: Thea Pharma
  Company Number: None

PATIENT
  Age: 75 Year
  Sex: Female

DRUGS (1)
  1. LATANOPROST [Suspect]
     Active Substance: LATANOPROST
     Indication: Open angle glaucoma
     Route: 047
     Dates: start: 2023

REACTIONS (1)
  - Mucous membrane pemphigoid [Not Recovered/Not Resolved]

NARRATIVE: CASE EVENT DATE: 20230101
